FAERS Safety Report 6212154-5 (Version None)
Quarter: 2009Q2

REPORT INFORMATION
  Report Type: 
  Country: None (occurrence: None)
  Receive Date: 20090602
  Receipt Date: 20090522
  Transmission Date: 20091009
  Serious: Yes (Other)
  Sender: FDA-Public Use
  Company Number: US-WYE-H09459109

PATIENT
  Sex: Female

DRUGS (1)
  1. PROTONIX [Suspect]
     Dosage: UNKNOWN

REACTIONS (5)
  - HEART RATE INCREASED [None]
  - HYPERSENSITIVITY [None]
  - LARYNGEAL OEDEMA [None]
  - LIP SWELLING [None]
  - THROAT TIGHTNESS [None]
